FAERS Safety Report 9105638 (Version 1)
Quarter: 2013Q1

REPORT INFORMATION
  Report Type: Spontaneous
  Country: GB (occurrence: GB)
  Receive Date: 20130220
  Receipt Date: 20130220
  Transmission Date: 20140127
  Serious: Yes (Death, Other)
  Sender: FDA-Public Use
  Company Number: GB-ABBOTT-13P-167-1051683-00

PATIENT
  Age: 9 Month
  Sex: Female

DRUGS (7)
  1. EPILIM [Suspect]
     Indication: CONVULSION
     Dates: start: 20120718, end: 20121128
  2. PHENYTOIN [Suspect]
     Indication: STATUS EPILEPTICUS
     Dates: start: 20121128, end: 20121128
  3. MIDAZOLAM [Suspect]
     Indication: CONVULSION
     Dates: start: 20121128, end: 20121128
  4. LEVETIRACETAM [Suspect]
     Indication: EPILEPSY
     Dates: start: 20120709, end: 20121128
  5. KEPPRA [Concomitant]
     Indication: PRODUCT USED FOR UNKNOWN INDICATION
  6. PARACETAMOL [Concomitant]
     Indication: PRODUCT USED FOR UNKNOWN INDICATION
  7. DIAZEPAM [Concomitant]
     Indication: PRODUCT USED FOR UNKNOWN INDICATION

REACTIONS (2)
  - Cardiac arrest [Fatal]
  - Respiratory acidosis [Unknown]
